FAERS Safety Report 19153459 (Version 1)
Quarter: 2021Q2

REPORT INFORMATION
  Report Type: Spontaneous
  Country: CN (occurrence: CN)
  Receive Date: 20210419
  Receipt Date: 20210419
  Transmission Date: 20210717
  Serious: Yes (Other)
  Sender: FDA-Public Use
  Company Number: CN-ROCHE-2810221

PATIENT
  Age: 51 Year
  Sex: Male

DRUGS (18)
  1. MABTHERA [Suspect]
     Active Substance: RITUXIMAB
     Indication: MANTLE CELL LYMPHOMA
     Dosage: SUBSEQUENT DOSES WAS RECEIVED ON /JAN/2015, 27/MAR/2015, 02/NOV/2015, 01/SEP/2016 AND /NOV/2016
     Route: 065
     Dates: start: 201402, end: 201403
  2. DOXORUBICIN [Concomitant]
     Active Substance: DOXORUBICIN
     Indication: MANTLE CELL LYMPHOMA
     Dates: start: 201402, end: 201403
  3. IBRUTINIB [Concomitant]
     Active Substance: IBRUTINIB
     Indication: MANTLE CELL LYMPHOMA
     Dates: start: 201705, end: 201712
  4. ACTEMRA [Suspect]
     Active Substance: TOCILIZUMAB
     Indication: CYTOKINE RELEASE SYNDROME
     Dosage: NEXT DOSE WAS RECEIVED ON 22/DEC/2017
     Route: 065
     Dates: start: 20171219
  5. PREDNISONE. [Concomitant]
     Active Substance: PREDNISONE
     Indication: MANTLE CELL LYMPHOMA
     Dates: start: 201402, end: 201403
  6. CYCLOPHOSPHAMIDE. [Concomitant]
     Active Substance: CYCLOPHOSPHAMIDE
     Dosage: DAY1 TO DAY 3
     Dates: start: 20171210, end: 20171212
  7. VINCRISTINE [Concomitant]
     Active Substance: VINCRISTINE
     Indication: MANTLE CELL LYMPHOMA
     Dates: start: 201402, end: 201403
  8. DEXAMETHASONE. [Concomitant]
     Active Substance: DEXAMETHASONE
     Indication: MANTLE CELL LYMPHOMA
     Dates: start: 20141106
  9. LENALIDOMIDE [Concomitant]
     Active Substance: LENALIDOMIDE
     Indication: MANTLE CELL LYMPHOMA
     Dates: start: 20150327
  10. BORTEZOMIB. [Concomitant]
     Active Substance: BORTEZOMIB
     Indication: MANTLE CELL LYMPHOMA
     Dates: start: 20141106
  11. CARBOPLATIN. [Concomitant]
     Active Substance: CARBOPLATIN
     Indication: MANTLE CELL LYMPHOMA
     Dates: start: 201611
  12. CYCLOPHOSPHAMIDE. [Concomitant]
     Active Substance: CYCLOPHOSPHAMIDE
     Dates: start: 20141106
  13. CYCLOPHOSPHAMIDE. [Concomitant]
     Active Substance: CYCLOPHOSPHAMIDE
     Indication: MANTLE CELL LYMPHOMA
     Dates: start: 201402, end: 201403
  14. LENALIDOMIDE [Concomitant]
     Active Substance: LENALIDOMIDE
     Dates: start: 20160901
  15. METHOTREXATE. [Concomitant]
     Active Substance: METHOTREXATE
     Indication: MANTLE CELL LYMPHOMA
     Dates: start: 20151102
  16. PACLITAXEL ALBUMIN [Concomitant]
     Active Substance: PACLITAXEL
     Indication: MANTLE CELL LYMPHOMA
     Dates: start: 201611
  17. FLUDARABINE [Concomitant]
     Active Substance: FLUDARABINE PHOSPHATE
     Indication: MANTLE CELL LYMPHOMA
     Dosage: DAY 1 TO DAY 3
     Dates: start: 20171210, end: 20171212
  18. CHIDAMIDE [Concomitant]
     Active Substance: TUCIDINOSTAT
     Indication: MANTLE CELL LYMPHOMA
     Dates: start: 20170301

REACTIONS (11)
  - Chills [Unknown]
  - Hydrothorax [Recovering/Resolving]
  - Hypotension [Unknown]
  - Neurotoxicity [Unknown]
  - Capillary leak syndrome [Unknown]
  - Pyrexia [Recovered/Resolved]
  - Off label use [Unknown]
  - Infection [Unknown]
  - Ascites [Recovering/Resolving]
  - Myelosuppression [Unknown]
  - Blood uric acid increased [Unknown]

NARRATIVE: CASE EVENT DATE: 20171216
